FAERS Safety Report 20729576 (Version 1)
Quarter: 2022Q2

REPORT INFORMATION
  Report Type: Spontaneous
  Country: IT (occurrence: IT)
  Receive Date: 20220420
  Receipt Date: 20220420
  Transmission Date: 20220721
  Serious: Yes (Other)
  Sender: FDA-Public Use
  Company Number: IT-NOVARTISPH-NVSC2022IT089505

PATIENT
  Sex: Female

DRUGS (2)
  1. BROLUCIZUMAB [Suspect]
     Active Substance: BROLUCIZUMAB
     Indication: Neovascular age-related macular degeneration
     Dosage: UNK, (LEFT EYE)
     Route: 065
     Dates: start: 20220222
  2. BROLUCIZUMAB [Suspect]
     Active Substance: BROLUCIZUMAB
     Dosage: 6 MG, QMO, (LEFT EYE)
     Route: 047
     Dates: start: 20220407

REACTIONS (4)
  - Vitritis [Recovering/Resolving]
  - Macular fibrosis [Unknown]
  - Retinal depigmentation [Unknown]
  - Vitreous disorder [Unknown]
